FAERS Safety Report 16010936 (Version 5)
Quarter: 2019Q3

REPORT INFORMATION
  Report Type: Spontaneous
  Country: US (occurrence: US)
  Receive Date: 20190227
  Receipt Date: 20190924
  Transmission Date: 20191004
  Serious: Yes (Death, Hospitalization, Other)
  Sender: FDA-Public Use
  Company Number: US-GLAXOSMITHKLINE-US2019GSK034608

PATIENT
  Sex: Male

DRUGS (1)
  1. PREVACID [Suspect]
     Active Substance: LANSOPRAZOLE
     Indication: GASTROOESOPHAGEAL REFLUX DISEASE
     Dosage: 30 MG, QD
     Route: 065

REACTIONS (11)
  - Death [Fatal]
  - Hepatitis alcoholic [Fatal]
  - Hypertension [Fatal]
  - Azotaemia [Unknown]
  - Hepatic failure [Fatal]
  - Renal injury [Unknown]
  - Chronic kidney disease [Unknown]
  - End stage renal disease [Fatal]
  - Dialysis [Unknown]
  - Acute kidney injury [Unknown]
  - Diabetes mellitus [Fatal]
